FAERS Safety Report 8231342-X (Version None)
Quarter: 2012Q1

REPORT INFORMATION
  Report Type: 
  Country: None (occurrence: None)
  Receive Date: 20120323
  Receipt Date: 20100216
  Transmission Date: 20120608
  Serious: Yes (Hospitalization)
  Sender: FDA-Public Use
  Company Number: DE-PFIZER INC-2012072948

PATIENT
  Age: 75 Year
  Sex: Female
  Weight: 77.95 kg

DRUGS (8)
  1. DESMOPRESSIN [Concomitant]
     Indication: BLOOD ANTIDIURETIC HORMONE DECREASED
     Dosage: 10 UG, 1X/DAY
     Dates: start: 20050112
  2. PANTOPRAZOLE [Concomitant]
     Dosage: 40 MG, 1X/DAY
     Dates: start: 20070213
  3. HYDROCORTISONE [Concomitant]
     Dosage: 15 MG, 1X/DAY
     Dates: start: 20060827
  4. MICTONORM [Concomitant]
     Dosage: UNK
     Dates: start: 20050311, end: 20070213
  5. SOMATROPIN [Suspect]
     Indication: HYPOPITUITARISM
     Dosage: 0.1 MG, 1X/DAY 7 INJECTIONS PER WEEK
     Dates: start: 20050524, end: 20081124
  6. LEVOTHYROXINE [Concomitant]
     Dosage: 50 UG, 1X/DAY
     Dates: start: 20060407
  7. HYDROCORTISONE [Concomitant]
     Indication: BLOOD CORTICOTROPHIN DECREASED
     Dosage: 30 MG, 1X/DAY
     Dates: start: 20041013, end: 20060826
  8. LEVOTHYROXINE [Concomitant]
     Indication: BLOOD THYROID STIMULATING HORMONE DECREASED
     Dosage: 25 UG, 1X/DAY
     Dates: start: 20050112, end: 20060406

REACTIONS (1)
  - HYPONATRAEMIA [None]
